FAERS Safety Report 21654702 (Version 1)
Quarter: 2022Q4

REPORT INFORMATION
  Report Type: Spontaneous
  Country: US (occurrence: US)
  Receive Date: 20221129
  Receipt Date: 20221129
  Transmission Date: 20230113
  Serious: No
  Sender: FDA-Public Use
  Company Number: US-SANOFI-01377652

PATIENT
  Age: 76 Year
  Sex: Female

DRUGS (1)
  1. DUPIXENT [Suspect]
     Active Substance: DUPILUMAB
     Indication: Dermatitis atopic
     Dosage: 300 MG, QOW
     Dates: start: 202208, end: 202211

REACTIONS (6)
  - Fall [Unknown]
  - Gout [Unknown]
  - Swelling [Unknown]
  - Joint injury [Unknown]
  - Mouth injury [Unknown]
  - Limb injury [Unknown]

NARRATIVE: CASE EVENT DATE: 20221115
